FAERS Safety Report 21843830 (Version 1)
Quarter: 2023Q1

REPORT INFORMATION
  Report Type: Spontaneous
  Country: US (occurrence: US)
  Receive Date: 20230110
  Receipt Date: 20230110
  Transmission Date: 20230418
  Serious: Yes (Hospitalization)
  Sender: FDA-Public Use
  Company Number: DEX 2023-0001

PATIENT
  Age: 11 Year
  Sex: Male

DRUGS (4)
  1. DEXMEDETOMIDINE HYDROCHLORIDE [Suspect]
     Active Substance: DEXMEDETOMIDINE HYDROCHLORIDE
     Indication: Sedative therapy
     Dosage: 1.5 MICROGRAM/KILOGRAM
     Route: 040
  2. DEXMEDETOMIDINE HYDROCHLORIDE [Suspect]
     Active Substance: DEXMEDETOMIDINE HYDROCHLORIDE
     Dosage: 1 MICROGRAM/KILOGRAM, QH
     Route: 040
  3. DEXMEDETOMIDINE HYDROCHLORIDE [Suspect]
     Active Substance: DEXMEDETOMIDINE HYDROCHLORIDE
     Dosage: 16 MICROGRAM, TITRATED OVER APPROXIMATELY 10 MINUTES (0.37 UG/KG)
     Route: 040
  4. SODIUM CHLORIDE [Concomitant]
     Active Substance: SODIUM CHLORIDE
     Indication: Product used for unknown indication
     Dosage: 20 MILLILITRE PER KILOGRAM
     Route: 065

REACTIONS (4)
  - Overdose [Unknown]
  - Incorrect drug administration rate [Unknown]
  - Bradycardia [Recovered/Resolved]
  - Product administered to patient of inappropriate age [Unknown]
